FAERS Safety Report 5146329-3 (Version None)
Quarter: 2006Q4

REPORT INFORMATION
  Report Type: 
  Country: None (occurrence: None)
  Receive Date: 20061102
  Receipt Date: 20061010
  Transmission Date: 20070319
  Serious: Yes (Other)
  Sender: FDA-Public Use
  Company Number: 2006116612

PATIENT
  Age: 65 Year
  Sex: Female

DRUGS (1)
  1. ZYVOX [Suspect]
     Indication: STAPHYLOCOCCAL INFECTION
     Dosage: 1200 MG, ORAL
     Route: 048
     Dates: start: 20060601, end: 20060601

REACTIONS (2)
  - DEAFNESS [None]
  - VISUAL ACUITY REDUCED [None]
